FAERS Safety Report 5873975-1 (Version None)
Quarter: 2008Q3

REPORT INFORMATION
  Report Type: 
  Country: None (occurrence: None)
  Receive Date: 20080908
  Receipt Date: 20080828
  Transmission Date: 20090109
  Serious: Yes (Other)
  Sender: FDA-Public Use
  Company Number: JP-MERCK-0808USA02331

PATIENT
  Age: 13 Year
  Sex: Female

DRUGS (1)
  1. FOSAMAX [Suspect]
     Indication: JUVENILE ARTHRITIS
     Route: 048

REACTIONS (2)
  - OSTEONECROSIS [None]
  - OVERDOSE [None]
